FAERS Safety Report 6667258-X (Version None)
Quarter: 2010Q2

REPORT INFORMATION
  Report Type: 
  Country: None (occurrence: None)
  Receive Date: 20100401
  Receipt Date: 20100401
  Transmission Date: 20101027
  Serious: Yes (Other)
  Sender: FDA-Public Use
  Company Number: None

PATIENT
  Sex: Female
  Weight: 59.9 kg

DRUGS (16)
  1. GEMTUZUMAB OZOGAMICIN [Suspect]
     Indication: MYELOID LEUKAEMIA
     Dosage: 5MG X ONE DOSE IV DRIP
     Route: 041
     Dates: start: 20100330, end: 20100330
  2. MITOXANTRONE [Suspect]
     Indication: MYELOID LEUKAEMIA
     Dosage: 16MG ONE DOSE IV DRIP
     Route: 041
     Dates: start: 20100325, end: 20100325
  3. ETOPOSIDE [Concomitant]
  4. ACYCLOVIR [Concomitant]
  5. AZTEONAM, [Concomitant]
  6. CITALOPRAM HYDROBROMIDE [Concomitant]
  7. AMOTIDINE, [Concomitant]
  8. FLUCONAZOLE, [Concomitant]
  9. FLUTICASONE-SALMETEROL, [Concomitant]
  10. ACETAMINOPHEN [Concomitant]
  11. FLUCONAZOLE [Concomitant]
  12. FLUTICASONE-SALMETEROL [Concomitant]
  13. ACETAMINOPHEN [Concomitant]
  14. DIPHENHYDROMINE [Concomitant]
  15. ONDANSATRON [Concomitant]
  16. LORAZEPAM [Concomitant]

REACTIONS (1)
  - CEREBRAL INFARCTION [None]
